FAERS Safety Report 9195723 (Version 1)
Quarter: 2013Q1

REPORT INFORMATION
  Report Type: Spontaneous
  Country: US (occurrence: None)
  Receive Date: 20120705
  Receipt Date: 20120705
  Transmission Date: 20140127
  Serious: Yes (Other)
  Sender: FDA-Public Use
  Company Number: 2012-000604

PATIENT
  Age: 30 Year
  Sex: Female

DRUGS (1)
  1. DORYX [Suspect]
     Indication: MALARIA PROPHYLAXIS
     Route: 048
     Dates: start: 201107

REACTIONS (9)
  - Oesophageal ulcer [None]
  - Oesophageal discomfort [None]
  - Oesophageal irritation [None]
  - Erosive oesophagitis [None]
  - Dysphagia [None]
  - Aphagia [None]
  - Muscle spasms [None]
  - Weight decreased [None]
  - Impaired healing [None]
